FAERS Safety Report 13655133 (Version 3)
Quarter: 2017Q3

REPORT INFORMATION
  Report Type: Spontaneous
  Country: US (occurrence: US)
  Receive Date: 20170615
  Receipt Date: 20170810
  Transmission Date: 20171127
  Serious: Yes (Other)
  Sender: FDA-Public Use
  Company Number: US-AMGEN-USASP2017088020

PATIENT
  Age: 58 Year
  Sex: Female
  Weight: 68.48 kg

DRUGS (8)
  1. LEXAPRO [Concomitant]
     Active Substance: ESCITALOPRAM OXALATE
     Dosage: 20 MG, UNK
  2. FLAXSEED [Concomitant]
     Active Substance: FLAX SEED
     Indication: BLOOD CHOLESTEROL ABNORMAL
     Dosage: UNK
  3. VITAMIN D [Concomitant]
     Active Substance: CHOLECALCIFEROL
     Dosage: UNK
  4. VERAPAMIL [Concomitant]
     Active Substance: VERAPAMIL HYDROCHLORIDE
     Indication: BLOOD PRESSURE ABNORMAL
     Dosage: UNK
  5. PROLIA [Suspect]
     Active Substance: DENOSUMAB
     Indication: OSTEOPOROSIS POSTMENOPAUSAL
     Dosage: UNK
     Route: 065
     Dates: start: 20170527
  6. LANSOPRAZOLE. [Concomitant]
     Active Substance: LANSOPRAZOLE
     Dosage: UNK
  7. CALCIUM [Concomitant]
     Active Substance: CALCIUM
     Dosage: UNK
  8. METOPROLOL. [Concomitant]
     Active Substance: METOPROLOL
     Dosage: UNK UNK, QD AT BEDTIME

REACTIONS (8)
  - Confusional state [Unknown]
  - Musculoskeletal disorder [Unknown]
  - Speech disorder [Unknown]
  - Disturbance in attention [Unknown]
  - Vomiting projectile [Unknown]
  - Dizziness [Unknown]
  - Myalgia [Unknown]
  - Feeling abnormal [Unknown]

NARRATIVE: CASE EVENT DATE: 2017
